FAERS Safety Report 8897756 (Version 1)
Quarter: 2012Q4

REPORT INFORMATION
  Report Type: 
  Country: ES (occurrence: ES)
  Receive Date: 20121109
  Receipt Date: 20121109
  Transmission Date: 20130627
  Serious: Yes (Hospitalization, Other)
  Sender: FDA-Public Use
  Company Number: ES-ELI_LILLY_AND_COMPANY-ES201211000452

PATIENT
  Age: 50 Year
  Sex: Male
  Weight: 74 kg

DRUGS (7)
  1. ALIMTA [Suspect]
     Indication: NON-SMALL CELL LUNG CANCER
     Dosage: 927 mg, UNK
     Route: 042
     Dates: start: 20111212
  2. CARBOPLATIN [Concomitant]
     Indication: NON-SMALL CELL LUNG CANCER
     Dosage: 584 mg, UNK
     Route: 042
     Dates: start: 20111212
  3. CLEXANE [Concomitant]
     Indication: THROMBOSIS PROPHYLAXIS
     Dosage: 140 mg, qd
     Route: 058
  4. LEXATIN [Concomitant]
     Dosage: 1.5 mg, bid
     Route: 048
  5. MORFINA                            /00036302/ [Concomitant]
     Dosage: 15 mg, bid
     Route: 048
  6. FUROSEMIDA                         /00032601/ [Concomitant]
     Indication: OEDEMA
     Dosage: 100 mg, bid
     Route: 048
  7. DEXAMETASONA                       /00016001/ [Concomitant]
     Indication: OEDEMA
     Dosage: UNK
     Route: 048

REACTIONS (2)
  - Mucosal inflammation [Recovered/Resolved]
  - Odynophagia [Unknown]
